FAERS Safety Report 17862271 (Version 2)
Quarter: 2020Q2

REPORT INFORMATION
  Report Type: Spontaneous
  Country: US (occurrence: US)
  Receive Date: 20200604
  Receipt Date: 20200609
  Transmission Date: 20200714
  Serious: No
  Sender: FDA-Public Use
  Company Number: US-JNJFOC-20200521552

PATIENT
  Sex: Male

DRUGS (1)
  1. MENS ROGAINE EXTRA STRENGTH [Suspect]
     Active Substance: MINOXIDIL
     Indication: ALOPECIA
     Dosage: HALF CAP FULL OR MORE
     Route: 061
     Dates: start: 201912, end: 20200512

REACTIONS (3)
  - Alopecia [Recovered/Resolved]
  - Product residue present [Recovered/Resolved]
  - Incorrect dose administered [Unknown]

NARRATIVE: CASE EVENT DATE: 202001
